FAERS Safety Report 19375302 (Version 1)
Quarter: 2021Q2

REPORT INFORMATION
  Report Type: Spontaneous
  Country: US (occurrence: US)
  Receive Date: 20210604
  Receipt Date: 20210604
  Transmission Date: 20210717
  Serious: No
  Sender: FDA-Public Use
  Company Number: US-SA-2021SA184542

PATIENT
  Age: 61 Year
  Sex: Male

DRUGS (1)
  1. SEVELAMER HYDROCHLORIDE. [Suspect]
     Active Substance: SEVELAMER HYDROCHLORIDE
     Dosage: 2 DF, Q8H

REACTIONS (3)
  - Product use complaint [Unknown]
  - Product odour abnormal [Unknown]
  - Product taste abnormal [Unknown]
